FAERS Safety Report 15373661 (Version 1)
Quarter: 2018Q3

REPORT INFORMATION
  Report Type: Spontaneous
  Country: US (occurrence: US)
  Receive Date: 20180912
  Receipt Date: 20180912
  Transmission Date: 20181010
  Serious: No
  Sender: FDA-Public Use
  Company Number: US-PFIZER INC-2018360023

PATIENT
  Age: 64 Year
  Sex: Male

DRUGS (2)
  1. GABAPENTIN. [Suspect]
     Active Substance: GABAPENTIN
     Indication: PARAESTHESIA
     Dosage: UNK
  2. GABAPENTIN. [Suspect]
     Active Substance: GABAPENTIN
     Indication: BURNING SENSATION

REACTIONS (7)
  - Peripheral swelling [Recovered/Resolved]
  - Product use in unapproved indication [Unknown]
  - Somnolence [Recovered/Resolved]
  - Irritability [Recovered/Resolved]
  - Weight increased [Recovered/Resolved]
  - Dry mouth [Recovered/Resolved]
  - Sluggishness [Recovered/Resolved]
